FAERS Safety Report 25943109 (Version 1)
Quarter: 2025Q4

REPORT INFORMATION
  Report Type: Spontaneous
  Country: EU (occurrence: EU)
  Receive Date: 20251021
  Receipt Date: 20251021
  Transmission Date: 20260117
  Serious: Yes (Death, Life-Threatening, Hospitalization, Other)
  Sender: Haleon PLC
  Company Number: EU-ELERTE-202400010

PATIENT
  Age: 34 Year
  Sex: Male
  Weight: 79 kg

DRUGS (37)
  1. IBUPROFEN [Suspect]
     Active Substance: IBUPROFEN
     Indication: Back pain
     Dosage: UNK THERAPY START DATE:/2016 THERAPY END DATE: /2016
     Route: 048
  2. PRAZEPAM [Suspect]
     Active Substance: PRAZEPAM
     Indication: Product used for unknown indication
     Route: 048
     Dates: start: 20160902
  3. OXAZEPAM [Concomitant]
     Active Substance: OXAZEPAM
     Indication: Psychiatric symptom
     Route: 048
  4. OXAZEPAM [Concomitant]
     Active Substance: OXAZEPAM
     Indication: Depression
  5. MIANSERIN HYDROCHLORIDE [Concomitant]
     Active Substance: MIANSERIN HYDROCHLORIDE
     Indication: Depression
     Route: 048
  6. MIANSERIN HYDROCHLORIDE [Concomitant]
     Active Substance: MIANSERIN HYDROCHLORIDE
     Indication: Psychiatric symptom
  7. PAROXETINE MESYLATE [Suspect]
     Active Substance: PAROXETINE MESYLATE
     Indication: Back pain
     Dosage: PAROXETINE 20 MG/UNK. THERAPY START DATE: /2016 THERAPY END DATE: /2016
     Route: 048
     Dates: start: 20160817
  8. CODEINE PHOSPHATE\IBUPROFEN [Suspect]
     Active Substance: CODEINE PHOSPHATE\IBUPROFEN
     Indication: Product used for unknown indication
     Route: 048
     Dates: start: 20160902
  9. CODEINE PHOSPHATE\IBUPROFEN [Suspect]
     Active Substance: CODEINE PHOSPHATE\IBUPROFEN
     Route: 048
     Dates: start: 20160902
  10. ARTANE [Concomitant]
     Active Substance: TRIHEXYPHENIDYL HYDROCHLORIDE
     Indication: Depression
     Route: 048
  11. ARTANE [Concomitant]
     Active Substance: TRIHEXYPHENIDYL HYDROCHLORIDE
     Indication: Psychiatric symptom
  12. VALIUM [Concomitant]
     Active Substance: DIAZEPAM
     Indication: Depression
     Route: 048
  13. VALIUM [Concomitant]
     Active Substance: DIAZEPAM
     Indication: Psychiatric symptom
  14. CODEINE PHOSPHATE\IBUPROFEN [Suspect]
     Active Substance: CODEINE PHOSPHATE\IBUPROFEN
     Indication: Back pain
     Dosage: 1 DOSAGE FORM THERAPY START DATE: /2016 THERAPY END DATE: /2016
     Route: 048
     Dates: start: 20160902
  15. ZOPICLONE [Concomitant]
     Active Substance: ZOPICLONE
     Indication: Depression
  16. ZOPICLONE [Concomitant]
     Active Substance: ZOPICLONE
     Indication: Psychiatric symptom
  17. KETAMINE [Suspect]
     Active Substance: KETAMINE
     Indication: Back pain
     Dosage: UNK. THERAPY START DATE: /2016 THERAPY END DATE: /2016
  18. OXYCONTIN [Suspect]
     Active Substance: OXYCODONE HYDROCHLORIDE
     Indication: Product used for unknown indication
  19. TRAMADOL HYDROCHLORIDE [Suspect]
     Active Substance: TRAMADOL HYDROCHLORIDE
     Indication: Back pain
     Dosage: UNK THERAPY START DATE: /2016 THERAPY END DATE: /2016
     Route: 048
     Dates: start: 20160903
  20. MIANSERIN HYDROCHLORIDE [Suspect]
     Active Substance: MIANSERIN HYDROCHLORIDE
     Indication: Back pain
     Dosage: UNK THERAPY START DATE: /2016 THERAPY END DATE: /2016
     Route: 048
  21. CLOBAZAM [Suspect]
     Active Substance: CLOBAZAM
     Indication: Product used for unknown indication
     Route: 048
     Dates: start: 20160824
  22. CLOTIAZEPAM [Suspect]
     Active Substance: CLOTIAZEPAM
     Indication: Product used for unknown indication
     Route: 048
     Dates: start: 20160830
  23. ETIFOXINE [Suspect]
     Active Substance: ETIFOXINE
     Indication: Product used for unknown indication
     Route: 048
     Dates: start: 20160810
  24. FENTANYL [Suspect]
     Active Substance: FENTANYL
     Indication: Back pain
     Dosage: UNK THERAPY START DATE: /2016 THERAPY END DATE: /2016/DUROGESIC
     Route: 062
     Dates: start: 20160726
  25. ACETAMINOPHEN\CODEINE PHOSPHATE [Suspect]
     Active Substance: ACETAMINOPHEN\CODEINE PHOSPHATE
     Indication: Product used for unknown indication
     Route: 048
  26. CLONAZEPAM [Suspect]
     Active Substance: CLONAZEPAM
     Indication: Product used for unknown indication
  27. ALPRAZOLAM [Concomitant]
     Active Substance: ALPRAZOLAM
     Indication: Psychiatric symptom
     Route: 048
  28. ALPRAZOLAM [Concomitant]
     Active Substance: ALPRAZOLAM
     Indication: Depression
  29. SKENAN [Suspect]
     Active Substance: MORPHINE SULFATE
     Indication: Back pain
     Dosage: 1 DOSAGE FORM, 1/DAY. THERAPY START AND END DATE /2016
     Route: 048
  30. SKENAN [Suspect]
     Active Substance: MORPHINE SULFATE
     Route: 048
     Dates: start: 20160902, end: 20160905
  31. QUETIAPINE FUMARATE [Suspect]
     Active Substance: QUETIAPINE FUMARATE
     Indication: Product used for unknown indication
     Route: 048
     Dates: start: 20160830
  32. VALIUM [Suspect]
     Active Substance: DIAZEPAM
     Indication: Product used for unknown indication
     Route: 048
     Dates: start: 20160902, end: 20160905
  33. AMISULPRIDE [Concomitant]
     Active Substance: AMISULPRIDE
     Indication: Depression
     Route: 048
  34. AMISULPRIDE [Concomitant]
     Active Substance: AMISULPRIDE
     Indication: Psychiatric symptom
  35. PAROXETINE HYDROCHLORIDE [Suspect]
     Active Substance: PAROXETINE HYDROCHLORIDE
     Indication: Back pain
     Dosage: PAROXETINE 20 MG/UNK THERAPY START DATE: /2016 THERAPY END DATE: /2016
     Route: 048
     Dates: start: 20160829
  36. ARTANE [Suspect]
     Active Substance: TRIHEXYPHENIDYL HYDROCHLORIDE
     Indication: Product used for unknown indication
     Route: 048
     Dates: start: 20160810
  37. NIFUROXAZIDE [Suspect]
     Active Substance: NIFUROXAZIDE
     Indication: Product used for unknown indication
     Route: 048

REACTIONS (34)
  - Encephalopathy [Fatal]
  - Labelled drug-drug interaction issue [Fatal]
  - Coronary artery stenosis [Fatal]
  - Hyperglycaemia [Fatal]
  - Toxicity to various agents [Fatal]
  - Large intestine infection [Fatal]
  - Cholecystitis infective [Fatal]
  - Confusional state [Fatal]
  - Gastric infarction [Fatal]
  - Respiratory depression [Fatal]
  - Hepatic failure [Fatal]
  - Jaundice [Fatal]
  - Pancreas infection [Fatal]
  - Cholecystitis infective [Fatal]
  - Drug screen false positive [Fatal]
  - Coma [Fatal]
  - Acute pulmonary oedema [Fatal]
  - Hepatitis acute [Fatal]
  - Accidental poisoning [Fatal]
  - Hepatic enzyme increased [Fatal]
  - Cardiomyopathy [Fatal]
  - Cardio-respiratory arrest [Fatal]
  - Somnolence [Fatal]
  - Myocardial infarction [Fatal]
  - Inflammation [Fatal]
  - Myocarditis [Fatal]
  - Overdose [Fatal]
  - Loss of consciousness [Fatal]
  - Stenosis [Fatal]
  - Pulmonary oedema [Fatal]
  - Hepatic cytolysis [Fatal]
  - Cardiac disorder [Unknown]
  - White blood cell count increased [Fatal]
  - Synovitis [Unknown]

NARRATIVE: CASE EVENT DATE: 20160902
